FAERS Safety Report 7846241-2 (Version None)
Quarter: 2011Q4

REPORT INFORMATION
  Report Type: 
  Country: None (occurrence: None)
  Receive Date: 20111025
  Receipt Date: 20111024
  Transmission Date: 20120403
  Serious: Yes (Other)
  Sender: FDA-Public Use
  Company Number: US-ROCHE-1004056

PATIENT
  Sex: Male

DRUGS (1)
  1. ZELBORAF [Suspect]
     Indication: PRODUCT USED FOR UNKNOWN INDICATION
     Dates: start: 20110830

REACTIONS (7)
  - PYREXIA [None]
  - DRY SKIN [None]
  - CHILLS [None]
  - RASH [None]
  - SQUAMOUS CELL CARCINOMA OF SKIN [None]
  - DIARRHOEA [None]
  - ARTHRALGIA [None]
